FAERS Safety Report 4433973-1 (Version None)
Quarter: 2004Q3

REPORT INFORMATION
  Report Type: 
  Country: None (occurrence: None)
  Receive Date: 20040825
  Receipt Date: 20040805
  Transmission Date: 20050211
  Serious: Yes (Other)
  Sender: FDA-Public Use
  Company Number: USA040874750

PATIENT
  Age: 58 Year
  Sex: Female

DRUGS (1)
  1. EVISTA [Suspect]
     Dosage: UNK
     Route: 065
     Dates: start: 20000101

REACTIONS (2)
  - ANEURYSM [None]
  - SPEECH DISORDER [None]
